FAERS Safety Report 17897593 (Version 1)
Quarter: 2020Q2

REPORT INFORMATION
  Report Type: Spontaneous
  Country: ES (occurrence: ES)
  Receive Date: 20200615
  Receipt Date: 20200615
  Transmission Date: 20200714
  Serious: Yes (Other)
  Sender: FDA-Public Use
  Company Number: NVSC2020ES164820

PATIENT
  Age: 65 Year
  Sex: Male

DRUGS (3)
  1. MOXIFLOXACIN. [Suspect]
     Active Substance: MOXIFLOXACIN
     Indication: INTRAOPERATIVE CARE
     Dosage: 0.1 ML (OF 5MG/ML)
     Route: 065
  2. PREDNISOLONE. [Suspect]
     Active Substance: PREDNISOLONE
     Indication: POSTOPERATIVE CARE
     Dosage: 10 MG/ML (STARTING 6 TIMES DAILY AND TAPERED 1 DROP PER WEEK)
     Route: 065
  3. MITOMYCIN C [Suspect]
     Active Substance: MITOMYCIN
     Indication: INTRAOPERATIVE CARE
     Dosage: 0.2 MG/ML
     Route: 065

REACTIONS (1)
  - Iris hypopigmentation [Recovering/Resolving]
